FAERS Safety Report 20289968 (Version 1)
Quarter: 2022Q1

REPORT INFORMATION
  Report Type: Spontaneous
  Country: US (occurrence: US)
  Receive Date: 20220104
  Receipt Date: 20220104
  Transmission Date: 20220424
  Serious: Yes (Hospitalization, Other)
  Sender: FDA-Public Use
  Company Number: US-NOVARTISPH-NVSC2021US301146

PATIENT

DRUGS (1)
  1. KYMRIAH [Suspect]
     Active Substance: TISAGENLECLEUCEL
     Indication: Diffuse large B-cell lymphoma
     Dosage: 1 DOSAGE FORM, ONCE/SINGLE, (1 CART INFUSION)
     Route: 042
     Dates: start: 20211228, end: 20211228

REACTIONS (2)
  - Angioedema [Unknown]
  - Tonsillar inflammation [Unknown]

NARRATIVE: CASE EVENT DATE: 20211230
